FAERS Safety Report 9356992 (Version 3)
Quarter: 2013Q3

REPORT INFORMATION
  Report Type: Spontaneous
  Country: US (occurrence: US)
  Receive Date: 20130620
  Receipt Date: 20130917
  Transmission Date: 20140515
  Serious: Yes (Other)
  Sender: FDA-Public Use
  Company Number: US-009507513-1306USA007707

PATIENT
  Sex: Female

DRUGS (1)
  1. INTRONA [Suspect]
     Indication: HEPATITIS C
     Dosage: UNK
     Dates: start: 19940101, end: 19940701

REACTIONS (2)
  - Liver transplant [Unknown]
  - Drug ineffective [Unknown]
